FAERS Safety Report 14718763 (Version 1)
Quarter: 2018Q2

REPORT INFORMATION
  Report Type: Spontaneous
  Country: FR (occurrence: FR)
  Receive Date: 20180405
  Receipt Date: 20180405
  Transmission Date: 20180711
  Serious: Yes (Hospitalization)
  Sender: FDA-Public Use
  Company Number: FR-AUROBINDO-AUR-APL-2018-017628

PATIENT
  Age: 27 Year
  Sex: Female

DRUGS (3)
  1. HELICIDINE [Suspect]
     Active Substance: ESCARGOT
     Indication: INFLUENZA LIKE ILLNESS
     Dosage: NON RENSEIGN?E ()
     Route: 048
     Dates: start: 20170313, end: 20170318
  2. PREDNISONE. [Suspect]
     Active Substance: PREDNISONE
     Indication: INFLUENZA LIKE ILLNESS
     Dosage: NON RENSEIGN?E ()
     Route: 048
     Dates: start: 20170313, end: 20170316
  3. TOPLEXIL                           /00111401/ [Suspect]
     Active Substance: ACETAMINOPHEN\GUAIFENESIN\OXOMEMAZINE\SODIUM BENZOATE
     Indication: INFLUENZA LIKE ILLNESS
     Dosage: NON RENSEIGN?E ()
     Route: 048
     Dates: start: 20170313, end: 20170318

REACTIONS (4)
  - Erythema multiforme [Recovered/Resolved]
  - Pruritus [Recovered/Resolved]
  - Stevens-Johnson syndrome [Recovered/Resolved]
  - Lip oedema [Recovered/Resolved]

NARRATIVE: CASE EVENT DATE: 20170320
